FAERS Safety Report 4805287-9 (Version None)
Quarter: 2005Q4

REPORT INFORMATION
  Report Type: 
  Country: None (occurrence: None)
  Receive Date: 20051017
  Receipt Date: 20051005
  Transmission Date: 20060501
  Serious: Yes (Other)
  Sender: FDA-Public Use
  Company Number: 2005137408

PATIENT
  Sex: Male

DRUGS (1)
  1. SUDAFED PE (PHENYLEPHRINE) [Suspect]
     Indication: NASOPHARYNGITIS
     Dosage: 2 TABS EVERY 5-6 HOURS, ORAL
     Route: 048

REACTIONS (3)
  - DIZZINESS [None]
  - FALL [None]
  - FEELING ABNORMAL [None]
